FAERS Safety Report 7869184-7 (Version None)
Quarter: 2011Q4

REPORT INFORMATION
  Report Type: 
  Country: None (occurrence: None)
  Receive Date: 20111024
  Receipt Date: 20111013
  Transmission Date: 20120403
  Serious: Yes (Hospitalization, Other)
  Sender: FDA-Public Use
  Company Number: 2011SP019419

PATIENT
  Age: 21 Year
  Sex: Female
  Weight: 68.0396 kg

DRUGS (3)
  1. NUVARING [Suspect]
     Indication: CONTRACEPTION
     Dates: end: 20090519
  2. CITALOPRAM HYDROBROMIDE [Concomitant]
  3. TRAZODONE HYDROCHLORIDE [Concomitant]

REACTIONS (8)
  - BRONCHITIS [None]
  - ANXIETY [None]
  - WEIGHT INCREASED [None]
  - PULMONARY EMBOLISM [None]
  - UPPER RESPIRATORY TRACT INFECTION [None]
  - THORACIC OUTLET SYNDROME [None]
  - BACK PAIN [None]
  - OLIGOMENORRHOEA [None]
